FAERS Safety Report 13900551 (Version 1)
Quarter: 2017Q3

REPORT INFORMATION
  Report Type: Spontaneous
  Country: US (occurrence: US)
  Receive Date: 20170823
  Receipt Date: 20170823
  Transmission Date: 20171127
  Serious: No
  Sender: FDA-Public Use
  Company Number: US-AMGEN-USASP2017124838

PATIENT
  Age: 59 Year
  Sex: Female

DRUGS (1)
  1. ENBREL [Suspect]
     Active Substance: ETANERCEPT
     Indication: RHEUMATOID ARTHRITIS
     Dosage: 50 MG, QWK
     Route: 065
     Dates: start: 201708

REACTIONS (9)
  - Injection site bruising [Unknown]
  - Oedema peripheral [Unknown]
  - Peripheral swelling [Unknown]
  - Injection site rash [Unknown]
  - Pain [Unknown]
  - Fatigue [Unknown]
  - Swelling [Unknown]
  - Chest pain [Unknown]
  - Weight increased [Unknown]

NARRATIVE: CASE EVENT DATE: 201708
